FAERS Safety Report 9849411 (Version 1)
Quarter: 2014Q1

REPORT INFORMATION
  Report Type: Spontaneous
  Country: FR (occurrence: None)
  Receive Date: 20140124
  Receipt Date: 20140124
  Transmission Date: 20141002
  Serious: Yes (Other)
  Sender: FDA-Public Use
  Company Number: FR-ZYDUS-002474

PATIENT
  Age: 50 Year
  Sex: 0

DRUGS (1)
  1. TRAMADOL [Suspect]

REACTIONS (1)
  - Hypoglycaemia [None]
